FAERS Safety Report 23847999 (Version 3)
Quarter: 2024Q2

REPORT INFORMATION
  Report Type: Spontaneous
  Country: US (occurrence: US)
  Receive Date: 20240513
  Receipt Date: 20240517
  Transmission Date: 20240716
  Serious: No
  Sender: FDA-Public Use
  Company Number: US-SANDOZ-SDZ2024US047102

PATIENT
  Sex: Female

DRUGS (1)
  1. ALBUTEROL SULFATE [Suspect]
     Active Substance: ALBUTEROL SULFATE
     Indication: Asthma
     Dosage: 3 DF, QOD,  3 PUFFS EVERY OTHER DAY
     Route: 048
     Dates: start: 202404

REACTIONS (3)
  - Incorrect dose administered [Unknown]
  - Incorrect dose administered by device [Unknown]
  - Device issue [Unknown]
